FAERS Safety Report 23613604 (Version 1)
Quarter: 2024Q1

REPORT INFORMATION
  Report Type: Spontaneous
  Country: US (occurrence: US)
  Receive Date: 20240309
  Receipt Date: 20240309
  Transmission Date: 20240410
  Serious: Yes (Other)
  Sender: FDA-Public Use
  Company Number: US-The Proactiv LLC-2154219

PATIENT
  Age: 42 Year
  Sex: Female

DRUGS (3)
  1. PROACTIV SOLUTION RENEWING CLEANSER [Suspect]
     Active Substance: BENZOYL PEROXIDE
     Route: 061
     Dates: start: 2005, end: 202402
  2. PROACTIV REVITALIZING TONER COMBINATION THERAPY ACNE TREATMENT [Suspect]
     Active Substance: SALICYLIC ACID
     Route: 061
     Dates: start: 2005, end: 202402
  3. PROACTIV REPAIRING TREATMENT [Suspect]
     Active Substance: BENZOYL PEROXIDE
     Route: 061
     Dates: start: 2005, end: 202402

REACTIONS (8)
  - Chronic cutaneous lupus erythematosus [Unknown]
  - Neoplasm malignant [Unknown]
  - Erythema [Recovering/Resolving]
  - Skin discomfort [Recovering/Resolving]
  - Dry skin [Recovering/Resolving]
  - Rash erythematous [Recovering/Resolving]
  - Sensitive skin [Recovering/Resolving]
  - Photosensitivity reaction [Recovering/Resolving]

NARRATIVE: CASE EVENT DATE: 20231101
